FAERS Safety Report 21212700 (Version 1)
Quarter: 2022Q3

REPORT INFORMATION
  Report Type: Spontaneous
  Country: US (occurrence: None)
  Receive Date: 20220812
  Receipt Date: 20220812
  Transmission Date: 20221026
  Serious: No
  Sender: FDA-Public Use
  Company Number: None

PATIENT
  Age: 56 Year
  Sex: Female

DRUGS (1)
  1. FORTEO [Suspect]
     Active Substance: TERIPARATIDE
     Dosage: FREQUENCY : DAILY;?
     Route: 058
     Dates: start: 20220523, end: 20220812

REACTIONS (7)
  - Arachnoiditis [None]
  - Nasal congestion [None]
  - Dysphagia [None]
  - Tremor [None]
  - Hyperhidrosis [None]
  - Food intolerance [None]
  - Nausea [None]

NARRATIVE: CASE EVENT DATE: 20220806
